FAERS Safety Report 8229269-2 (Version None)
Quarter: 2012Q1

REPORT INFORMATION
  Report Type: 
  Country: None (occurrence: None)
  Receive Date: 20120322
  Receipt Date: 20120316
  Transmission Date: 20120608
  Serious: Yes (Other)
  Sender: FDA-Public Use
  Company Number: US-ABBOTT-12P-163-0916362-00

PATIENT
  Age: 42 Year
  Sex: Female

DRUGS (6)
  1. ASACOL [Concomitant]
     Indication: CROHN'S DISEASE
  2. WELLBUTRIN [Concomitant]
     Indication: STRESS
  3. SANDOSTATIN [Concomitant]
     Indication: CARCINOID SYNDROME
  4. WELLBUTRIN [Concomitant]
     Indication: CROHN'S DISEASE
  5. HUMIRA [Suspect]
     Indication: CROHN'S DISEASE
     Dates: start: 20070101, end: 20120308
  6. WELLBUTRIN [Concomitant]
     Indication: COLITIS ULCERATIVE

REACTIONS (1)
  - SYSTEMIC LUPUS ERYTHEMATOSUS [None]
